FAERS Safety Report 5340865-2 (Version None)
Quarter: 2007Q2

REPORT INFORMATION
  Report Type: 
  Country: None (occurrence: None)
  Receive Date: 20070405
  Receipt Date: 20061116
  Transmission Date: 20071010
  Serious: No
  Sender: FDA-Public Use
  Company Number: US200611003265

PATIENT
  Age: 62 Year
  Sex: Female

DRUGS (3)
  1. CYMBALTA [Suspect]
     Indication: DEPRESSION
     Dosage: 30 MG, ORAL, 30 MG, QOD; ORAL
     Route: 048
     Dates: start: 20060101, end: 20060101
  2. CYMBALTA [Suspect]
     Indication: DEPRESSION
     Dosage: 30 MG, ORAL, 30 MG, QOD; ORAL
     Route: 048
     Dates: start: 20060101
  3. WELLBUTRIN [Concomitant]

REACTIONS (3)
  - HEADACHE [None]
  - HOT FLUSH [None]
  - SINUS CONGESTION [None]
